FAERS Safety Report 18555385 (Version 2)
Quarter: 2020Q4

REPORT INFORMATION
  Report Type: Spontaneous
  Country: US (occurrence: US)
  Receive Date: 20201127
  Receipt Date: 20201207
  Transmission Date: 20210114
  Serious: Yes (Hospitalization, Other)
  Sender: FDA-Public Use
  Company Number: US-NOVOPROD-747728

PATIENT
  Age: 72 Year
  Sex: Male
  Weight: 113.39 kg

DRUGS (2)
  1. NOVOLIN 70/30 [Suspect]
     Active Substance: INSULIN HUMAN
     Indication: TYPE 2 DIABETES MELLITUS
     Dosage: 60 IU, QD(45 UNITS IN THE MORNING AND BEFORE GOING TO BED 15 UNITS)
     Route: 058
     Dates: start: 201901
  2. NOVOLIN R [Suspect]
     Active Substance: INSULIN HUMAN
     Indication: TYPE 2 DIABETES MELLITUS
     Dosage: 10 UNIT EVERY HOUR NO MORE THAN 3 TIMES A DAY (ADMINISTERS WHEN BLOOD IS HIGH, 400-500)
     Route: 065
     Dates: start: 201901

REACTIONS (6)
  - Blood glucose fluctuation [Not Recovered/Not Resolved]
  - Product dose omission issue [Not Recovered/Not Resolved]
  - Blood glucose increased [Recovered/Resolved]
  - Blood glucose increased [Unknown]
  - Blood glucose decreased [Unknown]
  - Blood glucose increased [Not Recovered/Not Resolved]

NARRATIVE: CASE EVENT DATE: 2020
